FAERS Safety Report 9551281 (Version 1)
Quarter: 2013Q3

REPORT INFORMATION
  Report Type: Spontaneous
  Country: US (occurrence: US)
  Receive Date: 20130925
  Receipt Date: 20130925
  Transmission Date: 20140515
  Serious: No
  Sender: FDA-Public Use
  Company Number: US-009507513-1309USA010078

PATIENT
  Sex: Male

DRUGS (2)
  1. DULERA [Suspect]
     Dosage: UNK
  2. TEMODAR [Suspect]

REACTIONS (1)
  - Vitreous floaters [Unknown]
